FAERS Safety Report 4358836-1 (Version None)
Quarter: 2004Q2

REPORT INFORMATION
  Report Type: 
  Country: None (occurrence: None)
  Receive Date: 20040512
  Receipt Date: 20040505
  Transmission Date: 20050107
  Serious: Yes (Other)
  Sender: FDA-Public Use
  Company Number: 2004030410

PATIENT

DRUGS (2)
  1. ZARATOR (ATORVASTATIN) [Suspect]
     Indication: ILL-DEFINED DISORDER
     Dosage: ORAL
     Route: 048
  2. GLIPIZIDE [Suspect]
     Dosage: ORAL
     Route: 048

REACTIONS (1)
  - PULMONARY FIBROSIS [None]
